FAERS Safety Report 19488010 (Version 2)
Quarter: 2021Q3

REPORT INFORMATION
  Report Type: Other
  Country: CN (occurrence: CN)
  Receive Date: 20210702
  Receipt Date: 20210723
  Transmission Date: 20211014
  Serious: Yes (Other)
  Sender: FDA-Public Use
  Company Number: CN-ROCHE-2859718

PATIENT

DRUGS (3)
  1. METHOTREXATE. [Suspect]
     Active Substance: METHOTREXATE
     Indication: OCULAR LYMPHOMA
     Dosage: EVERY WEEK FOR 4 DOSES IN THE INDUCTION PHASE, EVERY 2 WEEKS FOR 2 DOSES AS CONSOLIDATION, THEN EVER
     Route: 050
  2. RITUXIMAB. [Suspect]
     Active Substance: RITUXIMAB
     Indication: OCULAR LYMPHOMA
     Dosage: ON DAY 1, EVERY 28 DAYS AS 1 CYCLE. 6 CYCLES AS PER PROTOCOL
     Route: 042
  3. LENALIDOMIDE [Suspect]
     Active Substance: LENALIDOMIDE
     Indication: OCULAR LYMPHOMA
     Dosage: DAY 1?21, EVERY 28 DAYS AS ONE CYCLE IN THE INDUCTION PHASE AND MAINTENANCE PHASE.
     Route: 048

REACTIONS (6)
  - Infusion related reaction [Unknown]
  - Respiratory tract infection [Unknown]
  - Pneumonia [Unknown]
  - Cataract [Unknown]
  - Neutropenia [Unknown]
  - Leukopenia [Unknown]
